FAERS Safety Report 4381566-7 (Version None)
Quarter: 2004Q2

REPORT INFORMATION
  Report Type: 
  Country: None (occurrence: None)
  Receive Date: 20040621
  Receipt Date: 20040611
  Transmission Date: 20050107
  Serious: Yes (Other)
  Sender: FDA-Public Use
  Company Number: HK-MERCK-0406HKG00006

PATIENT
  Age: 15 Day
  Sex: Male

DRUGS (10)
  1. AZTREONAM [Concomitant]
     Indication: RESPIRATORY DISTRESS
     Route: 042
     Dates: start: 20040101, end: 20040101
  2. BERACTANT [Concomitant]
     Indication: NEONATAL RESPIRATORY DISTRESS SYNDROME
     Route: 065
     Dates: start: 20040101
  3. CEFTAZIDIME [Concomitant]
     Indication: PYREXIA
     Route: 042
     Dates: start: 20040101
  4. DEXAMETHASONE [Suspect]
     Indication: PREMATURE BABY
     Route: 042
     Dates: start: 20040101, end: 20040101
  5. DEXAMETHASONE [Suspect]
     Route: 042
     Dates: start: 20040101, end: 20040101
  6. DEXAMETHASONE [Suspect]
     Indication: BRONCHOPULMONARY DYSPLASIA
     Route: 042
     Dates: start: 20040101, end: 20040101
  7. DEXAMETHASONE [Suspect]
     Route: 042
     Dates: start: 20040101, end: 20040101
  8. INDOCIN I.V. [Suspect]
     Indication: PATENT DUCTUS ARTERIOSUS
     Route: 042
     Dates: start: 20040101, end: 20040101
  9. PENICILLIN (UNSPECIFIED) [Concomitant]
     Indication: RESPIRATORY DISTRESS
     Route: 042
     Dates: start: 20040101, end: 20040101
  10. VANCOMYCIN [Concomitant]
     Indication: PYREXIA
     Route: 042
     Dates: start: 20040101

REACTIONS (8)
  - BLOOD CREATININE INCREASED [None]
  - BRONCHOPULMONARY DYSPLASIA [None]
  - GASTROINTESTINAL DISORDER [None]
  - ILEAL PERFORATION [None]
  - MUCORMYCOSIS [None]
  - POST PROCEDURAL COMPLICATION [None]
  - TEMPERATURE REGULATION DISORDER [None]
  - THROMBOCYTOPENIA [None]
